FAERS Safety Report 7363498-5 (Version None)
Quarter: 2011Q1

REPORT INFORMATION
  Report Type: 
  Country: None (occurrence: None)
  Receive Date: 20110321
  Receipt Date: 20110221
  Transmission Date: 20110831
  Serious: No
  Sender: FDA-Public Use
  Company Number: US-B.I. PHARMACEUTICALS,INC./RIDGEFIELD-2011-BP-06470BP

PATIENT
  Sex: Male

DRUGS (11)
  1. SIMVASTATIN [Concomitant]
     Indication: BLOOD CHOLESTEROL INCREASED
  2. PRAVACHOL [Concomitant]
     Indication: BLOOD CHOLESTEROL INCREASED
  3. PREDNISONE [Concomitant]
     Indication: RHEUMATOID ARTHRITIS
  4. CALCIUM + D [Concomitant]
     Indication: PROPHYLAXIS
  5. PRADAXA [Suspect]
     Indication: ATRIAL FIBRILLATION
     Dosage: 300 MG
     Route: 048
     Dates: start: 20110101
  6. METOPROLOL [Concomitant]
     Indication: ATRIAL FIBRILLATION
  7. FOLIC ACID [Concomitant]
     Indication: PROPHYLAXIS
  8. ENALAPRIL [Concomitant]
     Indication: HYPERTENSION
  9. CARDIZEM [Concomitant]
     Indication: ATRIAL FIBRILLATION
  10. DEMADEX [Concomitant]
     Indication: FLUID RETENTION
  11. OMEPRAZOLE [Concomitant]
     Indication: PROPHYLAXIS

REACTIONS (1)
  - FLATULENCE [None]
